FAERS Safety Report 20620132 (Version 1)
Quarter: 2022Q1

REPORT INFORMATION
  Report Type: Spontaneous
  Country: US (occurrence: None)
  Receive Date: 20220321
  Receipt Date: 20220321
  Transmission Date: 20220423
  Serious: Yes (Hospitalization)
  Sender: FDA-Public Use
  Company Number: None

PATIENT
  Age: 62 Year
  Sex: Female

DRUGS (1)
  1. BENLYSTA [Suspect]
     Active Substance: BELIMUMAB
     Indication: Systemic lupus erythematosus
     Dosage: 200MG OTHER SUBCUTANEOUS
     Route: 058
     Dates: start: 20211220

REACTIONS (9)
  - Loss of consciousness [None]
  - Headache [None]
  - Rhinorrhoea [None]
  - Peripheral swelling [None]
  - Peripheral swelling [None]
  - Paraesthesia oral [None]
  - Pharyngeal paraesthesia [None]
  - Gait disturbance [None]
  - Mental impairment [None]

NARRATIVE: CASE EVENT DATE: 20220304
